FAERS Safety Report 6187831-5 (Version None)
Quarter: 2009Q2

REPORT INFORMATION
  Report Type: 
  Country: None (occurrence: None)
  Receive Date: 20090511
  Receipt Date: 20090511
  Transmission Date: 20091009
  Serious: No
  Sender: FDA-Public Use
  Company Number: None

PATIENT
  Age: 66 Year
  Sex: Female
  Weight: 113.3993 kg

DRUGS (1)
  1. ABILIFY [Suspect]
     Indication: DEPRESSION
     Dosage: 2 1/2 MG ONCE DAILY ORAL  (DURATION: 2 1/2 WEEKS)
     Route: 048

REACTIONS (2)
  - INSOMNIA [None]
  - READING DISORDER [None]
